FAERS Safety Report 8113069-8 (Version None)
Quarter: 2012Q1

REPORT INFORMATION
  Report Type: 
  Country: None (occurrence: None)
  Receive Date: 20120203
  Receipt Date: 20120125
  Transmission Date: 20120608
  Serious: Yes (Life-Threatening, Hospitalization, Disabling, Other)
  Sender: FDA-Public Use
  Company Number: CZ-GLAXOSMITHKLINE-B0759182A

PATIENT
  Age: 15 Year
  Sex: Male

DRUGS (1)
  1. LAMICTAL [Suspect]
     Indication: AFFECTIVE DISORDER
     Dosage: 50MG TWICE PER DAY
     Route: 065

REACTIONS (23)
  - PYREXIA [None]
  - STOMATITIS [None]
  - CIRCULATORY COLLAPSE [None]
  - TOXIC EPIDERMAL NECROLYSIS [None]
  - SYMBLEPHARON [None]
  - OROPHARYNGEAL PAIN [None]
  - SEPTIC SHOCK [None]
  - DYSPHAGIA [None]
  - RHINITIS HYPERTROPHIC [None]
  - OEDEMA [None]
  - ERYTHEMA [None]
  - EYE DISCHARGE [None]
  - PHARYNGITIS [None]
  - EYE IRRITATION [None]
  - PHIMOSIS [None]
  - CONJUNCTIVITIS INFECTIVE [None]
  - SKIN LESION [None]
  - RESPIRATORY FAILURE [None]
  - CONJUNCTIVAL OEDEMA [None]
  - ORAL HERPES [None]
  - DERMATITIS BULLOUS [None]
  - TRICHIASIS [None]
  - CONJUNCTIVAL HYPERAEMIA [None]
